FAERS Safety Report 4369998-4 (Version None)
Quarter: 2004Q2

REPORT INFORMATION
  Report Type: 
  Country: None (occurrence: None)
  Receive Date: 20040603
  Receipt Date: 20040329
  Transmission Date: 20050107
  Serious: Yes (Hospitalization)
  Sender: FDA-Public Use
  Company Number: JP-GLAXOSMITHKLINE-B0328576A

PATIENT
  Age: 62 Year
  Sex: Male

DRUGS (6)
  1. PAXIL [Suspect]
     Indication: DEPRESSION
     Route: 048
     Dates: start: 20040219, end: 20040327
  2. LIMAS [Suspect]
     Indication: DEPRESSION
     Dosage: 100MG THREE TIMES PER DAY
     Route: 048
     Dates: start: 20040325, end: 20040327
  3. AMOXAN [Suspect]
     Indication: DEPRESSION
     Dosage: 25MG THREE TIMES PER DAY
     Route: 048
     Dates: start: 20040325, end: 20040327
  4. ANAFRANIL [Suspect]
     Indication: DEPRESSION
     Dosage: 8.33MG THREE TIMES PER DAY
     Route: 042
     Dates: start: 20040325, end: 20040327
  5. BENZALIN [Concomitant]
     Indication: INSOMNIA
     Dosage: 10MG PER DAY
     Route: 048
     Dates: start: 20040226, end: 20040318
  6. ALOSENN [Concomitant]
     Indication: CONSTIPATION
     Dosage: .5MG PER DAY
     Route: 048
     Dates: start: 20040304

REACTIONS (21)
  - ABNORMAL BEHAVIOUR [None]
  - AGGRESSION [None]
  - AGITATION [None]
  - ANXIETY [None]
  - BLOOD CREATINE PHOSPHOKINASE INCREASED [None]
  - CONFUSIONAL STATE [None]
  - DEPRESSED LEVEL OF CONSCIOUSNESS [None]
  - DIARRHOEA [None]
  - DYSURIA [None]
  - HYPERKINESIA [None]
  - LACRIMATION INCREASED [None]
  - LOCKED-IN SYNDROME [None]
  - MASKED FACIES [None]
  - MUSCLE RIGIDITY [None]
  - PYREXIA [None]
  - RESTLESSNESS [None]
  - RHINORRHOEA [None]
  - SEROTONIN SYNDROME [None]
  - SPEECH DISORDER [None]
  - STUPOR [None]
  - TREMOR [None]
